FAERS Safety Report 9132113 (Version 1)
Quarter: 2013Q1

REPORT INFORMATION
  Report Type: Report from Study
  Country: US (occurrence: US)
  Receive Date: 20130301
  Receipt Date: 20130301
  Transmission Date: 20140127
  Serious: No
  Sender: FDA-Public Use
  Company Number: US-MYLANLABS-2012S1002142

PATIENT
  Sex: Female

DRUGS (2)
  1. AMNESTEEM CAPSULES [Suspect]
     Indication: ACNE
  2. LOESTRIN [Concomitant]

REACTIONS (4)
  - Drug intolerance [Recovered/Resolved]
  - Headache [Recovered/Resolved]
  - Eye disorder [Recovered/Resolved]
  - Eye pain [Recovered/Resolved]
